FAERS Safety Report 6916781-9 (Version None)
Quarter: 2010Q3

REPORT INFORMATION
  Report Type: 
  Country: None (occurrence: None)
  Receive Date: 20100810
  Receipt Date: 20100804
  Transmission Date: 20110219
  Serious: Yes (Death)
  Sender: FDA-Public Use
  Company Number: DE-SANOFI-AVENTIS-2010SA035775

PATIENT
  Age: 82 Year
  Sex: Male
  Weight: 83.8 kg

DRUGS (23)
  1. FUROSEMID [Suspect]
     Indication: PRODUCT USED FOR UNKNOWN INDICATION
     Route: 042
     Dates: start: 20071020, end: 20071022
  2. VANCOMYCIN [Suspect]
     Indication: PRODUCT USED FOR UNKNOWN INDICATION
     Route: 042
     Dates: start: 20071019, end: 20071025
  3. GENTAMICIN [Suspect]
     Indication: PRODUCT USED FOR UNKNOWN INDICATION
     Route: 042
     Dates: start: 20071019, end: 20071025
  4. ACTRAPID HUMAN [Concomitant]
     Indication: PRODUCT USED FOR UNKNOWN INDICATION
     Route: 058
     Dates: start: 20071105, end: 20071105
  5. ACTRAPID HUMAN [Concomitant]
     Route: 058
     Dates: start: 20071106, end: 20071106
  6. ACTRAPID HUMAN [Concomitant]
     Route: 058
     Dates: start: 20071106, end: 20071106
  7. ALBUMIN (HUMAN) [Concomitant]
     Indication: PRODUCT USED FOR UNKNOWN INDICATION
     Route: 042
     Dates: start: 20071104, end: 20071107
  8. FUROSEMID [Concomitant]
     Route: 041
     Dates: start: 20071101, end: 20071102
  9. FUROSEMID [Concomitant]
     Route: 041
     Dates: start: 20071106, end: 20071112
  10. NEBIVOLOL HCL [Concomitant]
     Indication: PRODUCT USED FOR UNKNOWN INDICATION
     Route: 048
     Dates: start: 20071010, end: 20071018
  11. NEBIVOLOL HCL [Concomitant]
     Dosage: 1-0-0.5-0 DF
     Route: 048
     Dates: start: 20071019, end: 20071101
  12. ENALAPRIL ^HEUMANN^ [Concomitant]
     Indication: PRODUCT USED FOR UNKNOWN INDICATION
     Route: 048
     Dates: end: 20071031
  13. ZIENAM [Concomitant]
     Indication: PRODUCT USED FOR UNKNOWN INDICATION
     Route: 042
     Dates: start: 20071101, end: 20071107
  14. ZOLPIDEM [Concomitant]
     Indication: PRODUCT USED FOR UNKNOWN INDICATION
     Route: 048
     Dates: start: 20071105, end: 20071111
  15. ATROVENT [Concomitant]
     Indication: PRODUCT USED FOR UNKNOWN INDICATION
     Route: 048
     Dates: end: 20071101
  16. ALBUTEROL [Concomitant]
     Indication: PRODUCT USED FOR UNKNOWN INDICATION
     Route: 048
     Dates: end: 20071101
  17. THEOPHYLLINE [Concomitant]
     Route: 048
     Dates: start: 20071101, end: 20071105
  18. THEOPHYLLINE [Concomitant]
     Route: 048
     Dates: end: 20071019
  19. THEOPHYLLINE [Concomitant]
     Route: 048
     Dates: start: 20071102, end: 20071102
  20. THEOPHYLLINE [Concomitant]
     Route: 048
     Dates: start: 20071107, end: 20071111
  21. THEOPHYLLINE [Concomitant]
     Indication: PRODUCT USED FOR UNKNOWN INDICATION
     Route: 048
     Dates: start: 20071106, end: 20071107
  22. THEOPHYLLINE [Concomitant]
     Indication: PRODUCT USED FOR UNKNOWN INDICATION
     Route: 048
     Dates: start: 20071010, end: 20071019
  23. ISOPTIN [Concomitant]
     Indication: PRODUCT USED FOR UNKNOWN INDICATION
     Route: 042
     Dates: start: 20071105, end: 20071105

REACTIONS (3)
  - BLOOD CREATININE INCREASED [None]
  - GENERAL PHYSICAL HEALTH DETERIORATION [None]
  - RENAL FAILURE ACUTE [None]
